FAERS Safety Report 5264073-9 (Version None)
Quarter: 2007Q1

REPORT INFORMATION
  Report Type: 
  Country: None (occurrence: None)
  Receive Date: 20061213
  Receipt Date: 20041202
  Transmission Date: 20070707
  Serious: Yes (Other)
  Sender: FDA-Public Use
  Company Number: 2004UW24804

PATIENT
  Sex: Male

DRUGS (1)
  1. IRESSA [Suspect]
     Dosage: 250 MG DAILY PO
     Route: 048

REACTIONS (2)
  - BACK PAIN [None]
  - DEPRESSED MOOD [None]
